FAERS Safety Report 17977919 (Version 5)
Quarter: 2022Q3

REPORT INFORMATION
  Report Type: Report from Study
  Country: JP (occurrence: JP)
  Receive Date: 20200703
  Receipt Date: 20220720
  Transmission Date: 20221026
  Serious: Yes (Hospitalization, Other)
  Sender: FDA-Public Use
  Company Number: JP-GLAXOSMITHKLINE-JP2020JPN113326

PATIENT

DRUGS (5)
  1. BELIMUMAB [Suspect]
     Active Substance: BELIMUMAB
     Indication: Systemic lupus erythematosus
     Dosage: 200 MG, WE
     Route: 058
     Dates: start: 20191224, end: 20200626
  2. WARFARIN [Suspect]
     Active Substance: WARFARIN
  3. PROGRAF [Concomitant]
     Active Substance: TACROLIMUS
     Dosage: 1 MG
  4. PREDNISOLONE [Concomitant]
     Active Substance: PREDNISOLONE
     Dosage: 4 MG, 1D
     Dates: end: 20200123
  5. PREDNISOLONE [Concomitant]
     Active Substance: PREDNISOLONE
     Dosage: 25 MG, 1D
     Dates: start: 20200124

REACTIONS (3)
  - Platelet count decreased [Recovered/Resolved]
  - Systemic lupus erythematosus [Unknown]
  - Dialysis related complication [Unknown]

NARRATIVE: CASE EVENT DATE: 20200124
